FAERS Safety Report 7576309-X (Version None)
Quarter: 2011Q2

REPORT INFORMATION
  Report Type: 
  Country: None (occurrence: None)
  Receive Date: 20110628
  Receipt Date: 20110615
  Transmission Date: 20111010
  Serious: Yes (Death, Hospitalization, Other)
  Sender: FDA-Public Use
  Company Number: ES-ELI_LILLY_AND_COMPANY-ES201106001909

PATIENT
  Sex: Male
  Weight: 78 kg

DRUGS (13)
  1. OMEPRAZOLE [Concomitant]
     Indication: GASTRIC DISORDER
     Dosage: UNK, BID
     Route: 048
     Dates: end: 20110101
  2. CARVEDILOL [Concomitant]
     Dosage: UNK
     Route: 048
     Dates: end: 20110101
  3. NOVONORM [Concomitant]
     Dosage: UNK, EVERY 8 HRS
     Route: 048
     Dates: end: 20110101
  4. ASPIRIN [Concomitant]
     Dosage: UNK, QD
     Route: 048
     Dates: end: 20110101
  5. RIFALDIN [Concomitant]
     Dosage: UNK, QD
     Route: 048
     Dates: end: 20110101
  6. COLCHICINE [Concomitant]
     Dosage: UNK, QD
     Route: 065
     Dates: end: 20110101
  7. FORTEO [Suspect]
     Indication: OSTEOPOROSIS
     Dosage: 20 UG, QD
     Route: 058
     Dates: start: 20090609, end: 20110101
  8. ALLOPURINOL [Concomitant]
     Dosage: UNK, QD
     Route: 048
     Dates: end: 20110101
  9. METFORMIN HCL [Concomitant]
     Indication: DIABETES MELLITUS
     Dosage: UNK, EVERY 8 HRS
     Route: 048
     Dates: end: 20110101
  10. SEPTRA [Concomitant]
     Dosage: UNK, QD
     Route: 048
     Dates: end: 20110101
  11. PRAVASTATINA [Concomitant]
     Dosage: UNK, QD
     Route: 048
     Dates: end: 20110101
  12. DACORTIN [Concomitant]
     Indication: ARTHRITIS
     Dosage: 10 MG, BID
     Route: 048
  13. ZYVOX [Concomitant]
     Dosage: UNK, BID
     Route: 048
     Dates: end: 20110101

REACTIONS (12)
  - VOMITING [None]
  - SEPSIS [None]
  - CHOLECYSTITIS [None]
  - ENTEROCOCCAL INFECTION [None]
  - MYOCARDIAL INFARCTION [None]
  - PANCREATITIS ACUTE [None]
  - DYSPNOEA [None]
  - KNEE ARTHROPLASTY [None]
  - ADRENAL INSUFFICIENCY [None]
  - GASTROINTESTINAL HAEMORRHAGE [None]
  - CHEST PAIN [None]
  - HYPONATRAEMIA [None]
